FAERS Safety Report 6264214-0 (Version None)
Quarter: 2009Q3

REPORT INFORMATION
  Report Type: 
  Country: None (occurrence: None)
  Receive Date: 20090706
  Receipt Date: 20080825
  Transmission Date: 20100115
  Serious: Yes (Other)
  Sender: FDA-Public Use
  Company Number: 2008070022

PATIENT
  Age: 35 Year
  Sex: Female

DRUGS (3)
  1. SOMA [Suspect]
     Dosage: ORAL
     Route: 048
  2. TYLENOL W/ CODEINE NO. 3 [Suspect]
     Dosage: (EVERY 4 HOURS)
  3. DARVOCET-N 100 [Concomitant]

REACTIONS (1)
  - LOSS OF CONSCIOUSNESS [None]
